FAERS Safety Report 7808730-6 (Version None)
Quarter: 2011Q4

REPORT INFORMATION
  Report Type: 
  Country: None (occurrence: None)
  Receive Date: 20111007
  Receipt Date: 20111004
  Transmission Date: 20120403
  Serious: Yes (Hospitalization)
  Sender: FDA-Public Use
  Company Number: ZYD-11-AE-196

PATIENT
  Age: 48 Year
  Sex: Female

DRUGS (11)
  1. LAMOTRIGINE [Suspect]
     Indication: AFFECTIVE DISORDER
     Dosage: 50-100 MG-
     Dates: end: 20110825
  2. LAMOTRIGINE [Suspect]
     Indication: DEPRESSION
     Dosage: 50-100 MG-
     Dates: end: 20110825
  3. COREG [Concomitant]
  4. RAMIPRIL [Concomitant]
  5. SENNA PLUS [Concomitant]
  6. CELEXA [Concomitant]
  7. COUMADIN [Concomitant]
  8. COLACE [Concomitant]
  9. LAMOTRIGINE [Suspect]
     Indication: DEPRESSION
     Dosage: 100 MG-QAM-ORAL
     Route: 048
     Dates: start: 20110826, end: 20110830
  10. LAMOTRIGINE [Suspect]
     Indication: AFFECTIVE DISORDER
     Dosage: 100 MG-QAM-ORAL
     Route: 048
     Dates: start: 20110826, end: 20110830
  11. SYNTHROID [Concomitant]

REACTIONS (4)
  - DRUG RASH WITH EOSINOPHILIA AND SYSTEMIC SYMPTOMS [None]
  - BLISTER [None]
  - STEVENS-JOHNSON SYNDROME [None]
  - NERVE INJURY [None]
